FAERS Safety Report 10415584 (Version 1)
Quarter: 2014Q2

REPORT INFORMATION
  Report Type: Spontaneous
  Country: US (occurrence: None)
  Receive Date: 20140604
  Receipt Date: 20140604
  Transmission Date: 20141212
  Serious: Yes (Other)
  Sender: FDA-Public Use
  Company Number: 163-POMAL-14044212

PATIENT
  Age: 62 Year
  Sex: Female

DRUGS (5)
  1. POMALYST (POMALIDOMIDE) (4 MILLIGRAM, CAPSULES) [Suspect]
     Indication: PLASMA CELL MYELOMA
     Dosage: 21 IN 21 D
     Route: 048
     Dates: start: 20140409
  2. NBURONTIN (GABAPENTIN) [Concomitant]
  3. AMBIEN (ZOLPIDEM TARTRATE) [Concomitant]
  4. DEXAMETHASONE [Concomitant]
  5. VELCADE (BORTEZOMIB) [Concomitant]

REACTIONS (6)
  - Skin burning sensation [None]
  - Neuropathy peripheral [None]
  - Pruritus [None]
  - Dizziness [None]
  - Tremor [None]
  - Dyspnoea [None]
